FAERS Safety Report 16510076 (Version 19)
Quarter: 2021Q3

REPORT INFORMATION
  Report Type: Report from Study
  Country: CO (occurrence: CO)
  Receive Date: 20190701
  Receipt Date: 20210906
  Transmission Date: 20211014
  Serious: Yes (Hospitalization, Other)
  Sender: FDA-Public Use
  Company Number: PHHY2018CO158317

PATIENT
  Sex: Female
  Weight: 59 kg

DRUGS (9)
  1. REVOLADE [Suspect]
     Active Substance: ELTROMBOPAG OLAMINE
     Dosage: 25 MG, QD
     Route: 048
     Dates: start: 20190415
  2. REVOLADE [Suspect]
     Active Substance: ELTROMBOPAG OLAMINE
     Dosage: 50 MG, QD
     Route: 048
  3. METOPROLOL. [Suspect]
     Active Substance: METOPROLOL
     Indication: SINUS ARRHYTHMIA
     Dosage: 25 MG, Q12H
     Route: 065
  4. REVOLADE [Suspect]
     Active Substance: ELTROMBOPAG OLAMINE
     Indication: IMMUNE THROMBOCYTOPENIA
     Dosage: 25 MG, QD
     Route: 048
     Dates: start: 201808
  5. REVOLADE [Suspect]
     Active Substance: ELTROMBOPAG OLAMINE
     Dosage: UNK, QD
     Route: 048
  6. REVOLADE [Suspect]
     Active Substance: ELTROMBOPAG OLAMINE
     Dosage: 50 MG (TWO TABLETS OF 25 MG), QD
     Route: 048
     Dates: start: 201808
  7. REVOLADE [Suspect]
     Active Substance: ELTROMBOPAG OLAMINE
     Dosage: 25 MG, QD
     Route: 048
  8. REVOLADE [Suspect]
     Active Substance: ELTROMBOPAG OLAMINE
     Dosage: 50 MG, QD (AT NIGHT DAILY)
     Route: 048
  9. METOPROLOL. [Suspect]
     Active Substance: METOPROLOL
     Dosage: 50 MG, QD
     Route: 048

REACTIONS (22)
  - Malaise [Unknown]
  - Vaginal haemorrhage [Recovered/Resolved]
  - Gingival bleeding [Unknown]
  - Neuropathy peripheral [Unknown]
  - Hyperhidrosis [Unknown]
  - Inappropriate schedule of product administration [Unknown]
  - Bone pain [Not Recovered/Not Resolved]
  - Large intestine polyp [Unknown]
  - Platelet count decreased [Unknown]
  - Insomnia [Unknown]
  - Cerebral thrombosis [Unknown]
  - Asthenia [Unknown]
  - Blood urine present [Unknown]
  - Feeling of despair [Unknown]
  - Platelet count decreased [Recovered/Resolved]
  - Polyp [Unknown]
  - Pain [Unknown]
  - Headache [Unknown]
  - Headache [Recovered/Resolved]
  - Haematochezia [Unknown]
  - Arthralgia [Unknown]
  - Groin pain [Unknown]
